FAERS Safety Report 16856129 (Version 3)
Quarter: 2019Q4

REPORT INFORMATION
  Report Type: Spontaneous
  Country: US (occurrence: US)
  Receive Date: 20190926
  Receipt Date: 20191003
  Transmission Date: 20200122
  Serious: Yes (Death, Hospitalization, Other)
  Sender: FDA-Public Use
  Company Number: US-UNITED THERAPEUTICS-UNT-2019-015514

PATIENT
  Age: 76 Year
  Sex: Female
  Weight: 68.27 kg

DRUGS (1)
  1. REMODULIN [Suspect]
     Active Substance: TREPROSTINIL
     Indication: PULMONARY ARTERIAL HYPERTENSION
     Dosage: 0.160 ?G/KG, CONTINUING
     Route: 058
     Dates: start: 20130909

REACTIONS (7)
  - Balance disorder [Unknown]
  - Upper limb fracture [Unknown]
  - Hand fracture [Unknown]
  - Death [Fatal]
  - Fall [Recovered/Resolved with Sequelae]
  - Joint dislocation [Unknown]
  - Dizziness [Unknown]

NARRATIVE: CASE EVENT DATE: 20190913
